FAERS Safety Report 6710248-9 (Version None)
Quarter: 2010Q2

REPORT INFORMATION
  Report Type: 
  Country: None (occurrence: None)
  Receive Date: 20100430
  Receipt Date: 20100416
  Transmission Date: 20101027
  Serious: Yes (Other)
  Sender: FDA-Public Use
  Company Number: 010614

PATIENT
  Age: 36 Year
  Sex: Female

DRUGS (3)
  1. VIMPAT [Suspect]
     Indication: PARTIAL SEIZURES
     Dosage: (DOSE INCREASED BY 100 MG/WEEK. MAXIMUM DOSE: 200 MG)
     Dates: start: 20090420, end: 20090515
  2. LEVETIRACETAM [Concomitant]
  3. TOPIRAMATE [Concomitant]

REACTIONS (1)
  - DRUG INTOLERANCE [None]
